FAERS Safety Report 5108315-9 (Version None)
Quarter: 2006Q3

REPORT INFORMATION
  Report Type: 
  Country: None (occurrence: None)
  Receive Date: 20060914
  Receipt Date: 20060914
  Transmission Date: 20061208
  Serious: Yes (Life-Threatening, Hospitalization)
  Sender: FDA-Public Use
  Company Number: None

PATIENT
  Age: 15 Year
  Sex: Male
  Weight: 63.5036 kg

DRUGS (1)
  1. NIACIN [Suspect]
     Indication: WEIGHT CONTROL
     Dosage: 100 MG  ONCE PO
     Route: 048
     Dates: start: 20060912, end: 20060912

REACTIONS (3)
  - DYSPNOEA [None]
  - EYE SWELLING [None]
  - SKIN DISCOLOURATION [None]
